FAERS Safety Report 7440007-3 (Version None)
Quarter: 2011Q2

REPORT INFORMATION
  Report Type: 
  Country: None (occurrence: None)
  Receive Date: 20110427
  Receipt Date: 20110418
  Transmission Date: 20111010
  Serious: Yes (Other)
  Sender: FDA-Public Use
  Company Number: PHHY2010NZ83545

PATIENT
  Sex: Male
  Weight: 39 kg

DRUGS (3)
  1. RITALIN LA [Suspect]
     Dosage: 40 MG, QD
     Route: 048
  2. MELATONIN [Concomitant]
     Indication: SLEEP DISORDER
     Dosage: 3 MG, PRN
     Route: 048
     Dates: start: 20090101
  3. RITALIN LA [Suspect]
     Indication: ATTENTION DEFICIT/HYPERACTIVITY DISORDER
     Dosage: 40 MG, QD
     Route: 048
     Dates: start: 20100812, end: 20101203

REACTIONS (4)
  - PALATAL DISORDER [None]
  - REGURGITATION [None]
  - UPPER RESPIRATORY TRACT INFECTION [None]
  - DYSPHONIA [None]
